FAERS Safety Report 15919157 (Version 1)
Quarter: 2019Q1

REPORT INFORMATION
  Report Type: Spontaneous
  Country: US (occurrence: US)
  Receive Date: 20190205
  Receipt Date: 20190205
  Transmission Date: 20190417
  Serious: No
  Sender: FDA-Public Use
  Company Number: US-ROCHE-2055424

PATIENT
  Age: 48 Year
  Sex: Female
  Weight: 44.95 kg

DRUGS (4)
  1. XOLAIR [Suspect]
     Active Substance: OMALIZUMAB
     Dosage: ONGOING:NO
     Route: 058
     Dates: start: 201709, end: 201710
  2. XOLAIR [Suspect]
     Active Substance: OMALIZUMAB
     Dosage: ONGOING:NO
     Route: 058
     Dates: start: 201710, end: 201711
  3. XOLAIR [Suspect]
     Active Substance: OMALIZUMAB
     Dosage: ONGOING:YES
     Route: 058
     Dates: start: 201712
  4. XOLAIR [Suspect]
     Active Substance: OMALIZUMAB
     Indication: URTICARIA
     Dosage: ONGOING:NO
     Route: 058
     Dates: start: 20170608, end: 201708

REACTIONS (1)
  - Alopecia [Unknown]

NARRATIVE: CASE EVENT DATE: 201708
